FAERS Safety Report 8483506-8 (Version None)
Quarter: 2012Q3

REPORT INFORMATION
  Report Type: 
  Country: None (occurrence: None)
  Receive Date: 20120702
  Receipt Date: 20120626
  Transmission Date: 20120928
  Serious: Yes (Hospitalization)
  Sender: FDA-Public Use
  Company Number: PHHY2012PT053753

PATIENT
  Age: 37 Year
  Sex: Female

DRUGS (8)
  1. VALPROIC ACID [Interacting]
     Dosage: 250 MG, BID
  2. BIPERIDEN HYDROCHLORIDE TAB [Concomitant]
     Dosage: 4 MG, BID
  3. VALPROIC ACID [Interacting]
     Dosage: DECREASED TO 250MG IN THE MORNING AND 500MG AT NIGHT
  4. LORAZEPAM [Suspect]
     Dosage: 3.5 MG (1 MG ONCE A DAY PLUS 2.5 MG BEFORE BED)
  5. VALPROIC ACID [Interacting]
     Dosage: 250 MG, BID
  6. VALPROIC ACID [Interacting]
     Dosage: 500 MG, BID
  7. RISPERIDONE [Concomitant]
     Dosage: 3 MG, QD
  8. BIPERIDEN HYDROCHLORIDE TAB [Concomitant]
     Dosage: 2 MG, UNK

REACTIONS (12)
  - AKATHISIA [None]
  - AMNESIA [None]
  - HYPERAMMONAEMIC ENCEPHALOPATHY [None]
  - CONFUSIONAL STATE [None]
  - AMMONIA INCREASED [None]
  - INSOMNIA [None]
  - LETHARGY [None]
  - SLOW RESPONSE TO STIMULI [None]
  - MYDRIASIS [None]
  - HALLUCINATION, VISUAL [None]
  - DEPRESSED LEVEL OF CONSCIOUSNESS [None]
  - DRUG INTERACTION [None]
